FAERS Safety Report 13291181 (Version 1)
Quarter: 2017Q1

REPORT INFORMATION
  Report Type: Spontaneous
  Country: US (occurrence: US)
  Receive Date: 20170302
  Receipt Date: 20170302
  Transmission Date: 20170428
  Serious: Yes (Hospitalization)
  Sender: FDA-Public Use
  Company Number: None

PATIENT
  Age: 63 Year
  Sex: Male

DRUGS (1)
  1. LIDOCAINE. [Suspect]
     Active Substance: LIDOCAINE
     Dates: start: 20170220, end: 20170223

REACTIONS (5)
  - Abnormal dreams [None]
  - Feeling abnormal [None]
  - Hallucination, visual [None]
  - Diplopia [None]
  - Hallucination [None]

NARRATIVE: CASE EVENT DATE: 20170223
